FAERS Safety Report 5391635-0 (Version None)
Quarter: 2007Q3

REPORT INFORMATION
  Report Type: 
  Country: None (occurrence: None)
  Receive Date: 20070719
  Receipt Date: 20070712
  Transmission Date: 20080115
  Serious: Yes (Death, Hospitalization)
  Sender: FDA-Public Use
  Company Number: US-BAXTER-2007BH005904

PATIENT
  Age: 82 Year
  Sex: Male
  Weight: 75 kg

DRUGS (4)
  1. SODIUM CHLORIDE 0.9% IN PLASTIC CONTAINER [Suspect]
     Indication: HAEMODIALYSIS
     Route: 010
     Dates: start: 20070607, end: 20070607
  2. CEPHALEXIN [Concomitant]
     Indication: BACTERAEMIA
     Route: 065
     Dates: start: 20070510, end: 20070520
  3. FLAGYL [Concomitant]
     Indication: BACTERAEMIA
     Route: 065
     Dates: start: 20070512
  4. ZITHROMAX [Concomitant]
     Indication: BACTERAEMIA
     Dosage: DOSE UNIT:UNKNOWN
     Route: 065
     Dates: start: 20070502

REACTIONS (9)
  - ABDOMINAL PAIN [None]
  - ANAEMIA [None]
  - CARDIAC ARREST [None]
  - CHEST PAIN [None]
  - DEFAECATION URGENCY [None]
  - HAEMOLYSIS [None]
  - MALAISE [None]
  - MYOCARDIAL INFARCTION [None]
  - NAUSEA [None]
